FAERS Safety Report 25794693 (Version 1)
Quarter: 2025Q3

REPORT INFORMATION
  Report Type: Spontaneous
  Country: US (occurrence: US)
  Receive Date: 20250912
  Receipt Date: 20250912
  Transmission Date: 20251020
  Serious: Yes (Hospitalization)
  Sender: AMGEN
  Company Number: US-AMGEN-USASP2025177587

PATIENT
  Sex: Male

DRUGS (5)
  1. REPATHA [Suspect]
     Active Substance: EVOLOCUMAB
     Indication: Product used for unknown indication
     Dosage: 140 MILLIGRAM, Q2WK
     Route: 065
  2. REPATHA [Suspect]
     Active Substance: EVOLOCUMAB
     Route: 065
  3. GABAPENTIN [Concomitant]
     Active Substance: GABAPENTIN
     Route: 065
  4. ASPIRIN [Concomitant]
     Active Substance: ASPIRIN
     Indication: Cardiac disorder
  5. LISINOPRIL [Concomitant]
     Active Substance: LISINOPRIL
     Indication: Hypertension

REACTIONS (5)
  - Large intestine polyp [Unknown]
  - Urinary tract infection [Not Recovered/Not Resolved]
  - Urticaria [Unknown]
  - Oedema peripheral [Unknown]
  - Off label use [Unknown]
